FAERS Safety Report 5935535-3 (Version None)
Quarter: 2008Q4

REPORT INFORMATION
  Report Type: 
  Country: None (occurrence: None)
  Receive Date: 20081030
  Receipt Date: 20081008
  Transmission Date: 20090506
  Serious: No
  Sender: FDA-Public Use
  Company Number: US-BAYER-200814016BCC

PATIENT
  Age: 38 Year
  Sex: Female
  Weight: 70 kg

DRUGS (2)
  1. ALEVE (CAPLET) [Suspect]
     Indication: JOINT SPRAIN
     Dosage: TOTAL DAILY DOSE: 880 MG  UNIT DOSE: 220 MG
     Dates: start: 20080927, end: 20081007
  2. ADVAIR DISKUS 100/50 [Concomitant]

REACTIONS (1)
  - ARTHRALGIA [None]
